FAERS Safety Report 23342723 (Version 1)
Quarter: 2023Q4

REPORT INFORMATION
  Report Type: Report from Study
  Country: US (occurrence: US)
  Receive Date: 20231227
  Receipt Date: 20231227
  Transmission Date: 20240109
  Serious: Yes (Other)
  Sender: FDA-Public Use
  Company Number: US-INTRA-CELLULAR THERAPIES, INC.-2023ICT01829

PATIENT
  Age: 41 Year
  Sex: Female

DRUGS (3)
  1. CAPLYTA [Suspect]
     Active Substance: LUMATEPERONE
     Indication: Bipolar disorder
     Dosage: 42 MG
  2. UNSPECIFIED MOOD STABILIZERS [Concomitant]
  3. UNSPECIFIED ANTI-DEPRESSANTS [Concomitant]

REACTIONS (5)
  - Bipolar disorder [Unknown]
  - Therapeutic product effect decreased [Recovered/Resolved]
  - Irritability [Unknown]
  - Anger [Unknown]
  - Social avoidant behaviour [Unknown]
